FAERS Safety Report 13767366 (Version 1)
Quarter: 2017Q3

REPORT INFORMATION
  Report Type: Spontaneous
  Country: US (occurrence: US)
  Receive Date: 20170719
  Receipt Date: 20170719
  Transmission Date: 20171127
  Serious: Yes (Death, Life-Threatening)
  Sender: FDA-Public Use
  Company Number: None

PATIENT
  Age: 91 Year
  Sex: Female
  Weight: 68.04 kg

DRUGS (4)
  1. LASIX [Concomitant]
     Active Substance: FUROSEMIDE
  2. LISINOPRIL. [Concomitant]
     Active Substance: LISINOPRIL
  3. K-DUR [Concomitant]
     Active Substance: POTASSIUM CHLORIDE
  4. COUMADIN [Suspect]
     Active Substance: WARFARIN SODIUM
     Indication: DEEP VEIN THROMBOSIS
     Dosage: 5 MG PILLS MOUTH
     Route: 048
     Dates: end: 20080825

REACTIONS (1)
  - Upper gastrointestinal haemorrhage [None]

NARRATIVE: CASE EVENT DATE: 20080825
